FAERS Safety Report 6236578-5 (Version None)
Quarter: 2009Q2

REPORT INFORMATION
  Report Type: 
  Country: None (occurrence: None)
  Receive Date: 20090619
  Receipt Date: 20090612
  Transmission Date: 20091009
  Serious: Yes (Hospitalization, Other)
  Sender: FDA-Public Use
  Company Number: DE-JNJFOC-20090603921

PATIENT
  Age: 30 Year
  Sex: Male

DRUGS (11)
  1. HALDOL [Suspect]
     Route: 042
  2. HALDOL [Suspect]
     Route: 042
  3. HALDOL [Suspect]
     Route: 042
  4. HALDOL [Suspect]
     Indication: DRUG USE FOR UNKNOWN INDICATION
     Route: 042
  5. LEPONEX [Suspect]
     Indication: DRUG USE FOR UNKNOWN INDICATION
     Route: 048
  6. CIATYL-Z ACUPHASE [Suspect]
     Indication: DRUG USE FOR UNKNOWN INDICATION
     Route: 030
  7. DIAZEPAM [Concomitant]
     Route: 042
  8. DIAZEPAM [Concomitant]
     Route: 042
  9. DIAZEPAM [Concomitant]
     Route: 042
  10. DIAZEPAM [Concomitant]
     Route: 042
  11. HEPARIN [Concomitant]
     Route: 058

REACTIONS (2)
  - ELECTROCARDIOGRAM ABNORMAL [None]
  - ELECTROCARDIOGRAM QT PROLONGED [None]
